FAERS Safety Report 7712348-3 (Version None)
Quarter: 2011Q3

REPORT INFORMATION
  Report Type: 
  Country: None (occurrence: None)
  Receive Date: 20110826
  Receipt Date: 20110819
  Transmission Date: 20111222
  Serious: Yes (Other)
  Sender: FDA-Public Use
  Company Number: CA-ROCHE-785399

PATIENT
  Sex: Female

DRUGS (11)
  1. PREDNISONE [Concomitant]
  2. TOCILIZUMAB [Suspect]
     Indication: RHEUMATOID ARTHRITIS
     Dosage: FORM: INFUSION
     Route: 042
     Dates: start: 20110224
  3. OXYCONTIN [Concomitant]
     Indication: PAIN
  4. METHOTREXATE [Concomitant]
  5. FOLIC ACID [Concomitant]
  6. ASPIRIN [Concomitant]
  7. DOMPERIDONE [Concomitant]
     Indication: UNEVALUABLE EVENT
  8. PANTOPRAZOLE [Concomitant]
     Indication: UNEVALUABLE EVENT
  9. PREDNISONE [Concomitant]
  10. LIPITOR [Concomitant]
  11. VITAMIN D [Concomitant]

REACTIONS (6)
  - DEPRESSION [None]
  - OEDEMA PERIPHERAL [None]
  - HEADACHE [None]
  - FATIGUE [None]
  - DRY MOUTH [None]
  - ANAEMIA [None]
